FAERS Safety Report 6530393-0 (Version None)
Quarter: 2009Q4

REPORT INFORMATION
  Report Type: 
  Country: None (occurrence: None)
  Receive Date: 20091231
  Receipt Date: 20091221
  Transmission Date: 20100525
  Serious: Yes (Other)
  Sender: FDA-Public Use
  Company Number: 003437

PATIENT
  Sex: 0

DRUGS (1)
  1. LACOSAMIDE [Suspect]

REACTIONS (1)
  - ARRHYTHMIA [None]
